FAERS Safety Report 17099380 (Version 4)
Quarter: 2023Q4

REPORT INFORMATION
  Report Type: Spontaneous
  Country: US (occurrence: US)
  Receive Date: 20191202
  Receipt Date: 20231115
  Transmission Date: 20240110
  Serious: No
  Sender: FDA-Public Use
  Company Number: US-PFIZER INC-2019513834

PATIENT
  Age: 71 Year
  Sex: Female
  Weight: 68.95 kg

DRUGS (2)
  1. XELJANZ [Suspect]
     Active Substance: TOFACITINIB CITRATE
     Indication: Rheumatoid arthritis
     Dosage: 5 MG, 2X/DAY
     Route: 048
  2. XELJANZ [Suspect]
     Active Substance: TOFACITINIB CITRATE
     Dosage: 5 MG, 2X/DAY
     Route: 048

REACTIONS (3)
  - Alopecia [Unknown]
  - Brain fog [Unknown]
  - Blood cholesterol increased [Unknown]

NARRATIVE: CASE EVENT DATE: 20190601
